FAERS Safety Report 16422585 (Version 2)
Quarter: 2019Q2

REPORT INFORMATION
  Report Type: Spontaneous
  Country: AT (occurrence: AT)
  Receive Date: 20190612
  Receipt Date: 20190621
  Transmission Date: 20190711
  Serious: Yes (Life-Threatening, Hospitalization, Other)
  Sender: FDA-Public Use
  Company Number: AT-MYLANLABS-2019M1054083

PATIENT
  Age: 22 Year
  Sex: Female
  Weight: 76 kg

DRUGS (4)
  1. TOPAMAX [Concomitant]
     Active Substance: TOPIRAMATE
     Indication: PRODUCT USED FOR UNKNOWN INDICATION
     Dosage: 200 MILLIGRAM, QD
     Route: 065
  2. WELLBUTRIN [Interacting]
     Active Substance: BUPROPION HYDROCHLORIDE
     Indication: DEPRESSION
     Dosage: 150 MILLIGRAM, QD
     Route: 048
     Dates: start: 20141010, end: 20141024
  3. TOPAMAX [Concomitant]
     Active Substance: TOPIRAMATE
     Dosage: 200 UNK, 200 MG, QD FROM 2 YEARS
     Route: 048
     Dates: start: 2012
  4. FLUOXETINE HYDROCHLORIDE. [Suspect]
     Active Substance: FLUOXETINE HYDROCHLORIDE
     Indication: DEPRESSION
     Dosage: 60 MILLIGRAM, QD
     Route: 048

REACTIONS (11)
  - Bipolar disorder [Unknown]
  - Suicidal ideation [Recovered/Resolved]
  - Condition aggravated [Unknown]
  - Apathy [Recovered/Resolved]
  - Depression [Recovered/Resolved]
  - Suicide attempt [Recovered/Resolved]
  - Bulimia nervosa [Recovered/Resolved]
  - Drug interaction [Recovered/Resolved]
  - Drug level increased [Recovered/Resolved]
  - Restlessness [Unknown]
  - Agitation [Unknown]

NARRATIVE: CASE EVENT DATE: 201410
